FAERS Safety Report 25262349 (Version 2)
Quarter: 2025Q2

REPORT INFORMATION
  Report Type: Report from Study
  Country: CH (occurrence: CH)
  Receive Date: 20250502
  Receipt Date: 20250606
  Transmission Date: 20250716
  Serious: Yes (Other)
  Sender: AMGEN
  Company Number: CH-AMGEN-CHENI2025084202

PATIENT
  Age: 68 Year
  Sex: Female

DRUGS (13)
  1. SOTORASIB [Suspect]
     Active Substance: SOTORASIB
     Indication: Non-small cell lung cancer
     Route: 065
     Dates: start: 20240103
  2. SOTORASIB [Suspect]
     Active Substance: SOTORASIB
     Route: 065
     Dates: start: 20240502
  3. SOTORASIB [Suspect]
     Active Substance: SOTORASIB
     Route: 065
     Dates: start: 20240530
  4. SOTORASIB [Suspect]
     Active Substance: SOTORASIB
     Route: 065
     Dates: start: 20240613
  5. SOTORASIB [Suspect]
     Active Substance: SOTORASIB
     Route: 065
     Dates: start: 20240701
  6. SOTORASIB [Suspect]
     Active Substance: SOTORASIB
     Route: 065
     Dates: start: 20240813
  7. SOTORASIB [Suspect]
     Active Substance: SOTORASIB
     Route: 065
     Dates: start: 20240828
  8. SOTORASIB [Suspect]
     Active Substance: SOTORASIB
     Route: 065
     Dates: start: 20240925
  9. SOTORASIB [Suspect]
     Active Substance: SOTORASIB
     Route: 065
     Dates: start: 20241018
  10. SOTORASIB [Suspect]
     Active Substance: SOTORASIB
     Route: 065
     Dates: start: 20241107
  11. SOTORASIB [Suspect]
     Active Substance: SOTORASIB
     Route: 065
     Dates: start: 20241205
  12. SOTORASIB [Suspect]
     Active Substance: SOTORASIB
     Route: 065
     Dates: start: 20250130
  13. SOTORASIB [Suspect]
     Active Substance: SOTORASIB
     Route: 065
     Dates: start: 20250219, end: 20250404

REACTIONS (1)
  - Non-small cell lung cancer [Unknown]

NARRATIVE: CASE EVENT DATE: 20250401
